FAERS Safety Report 9405508 (Version 1)
Quarter: 2013Q3

REPORT INFORMATION
  Report Type: Spontaneous
  Country: NL (occurrence: NL)
  Receive Date: 20130715
  Receipt Date: 20130715
  Transmission Date: 20140515
  Serious: Yes (Hospitalization)
  Sender: FDA-Public Use
  Company Number: AUR-APL-2013-05722

PATIENT
  Age: 68 Year
  Sex: Male
  Weight: 74 kg

DRUGS (2)
  1. AMOXICILLIN+CLAVULANIC ACID [Suspect]
     Indication: OSTEITIS
     Route: 048
     Dates: start: 20130225
  2. PANTOPRAZOLE (PANTOPRAZOLE) [Suspect]
     Indication: ABDOMINAL DISCOMFORT
     Route: 048
     Dates: start: 20130315, end: 20130316

REACTIONS (2)
  - Liver function test abnormal [None]
  - Liver disorder [None]
